FAERS Safety Report 9815269 (Version 3)
Quarter: 2014Q2

REPORT INFORMATION
  Report Type: Report from Study
  Country: JP (occurrence: JP)
  Receive Date: 20140114
  Receipt Date: 20140403
  Transmission Date: 20141212
  Serious: Yes (Hospitalization)
  Sender: FDA-Public Use
  Company Number: JP-JNJFOC-20140104434

PATIENT
  Age: 72 Year
  Sex: Female
  Weight: 51 kg

DRUGS (16)
  1. SIMPONI [Suspect]
     Indication: RHEUMATOID ARTHRITIS
     Route: 058
     Dates: start: 20131111, end: 20131111
  2. SIMPONI [Suspect]
     Indication: RHEUMATOID ARTHRITIS
     Route: 058
     Dates: start: 20131015, end: 20131015
  3. SIMPONI [Suspect]
     Indication: RHEUMATOID ARTHRITIS
     Route: 058
     Dates: start: 20130924, end: 20130924
  4. SIMPONI [Suspect]
     Indication: RHEUMATOID ARTHRITIS
     Route: 058
     Dates: start: 20130826, end: 20130826
  5. SIMPONI [Suspect]
     Indication: RHEUMATOID ARTHRITIS
     Route: 058
     Dates: start: 20130515, end: 20130515
  6. METHOTREXATE [Suspect]
     Indication: RHEUMATOID ARTHRITIS
     Route: 048
     Dates: start: 20131015
  7. METHOTREXATE [Suspect]
     Indication: RHEUMATOID ARTHRITIS
     Route: 048
     Dates: start: 20060728, end: 20131014
  8. BUCILLAMINE [Suspect]
     Indication: RHEUMATOID ARTHRITIS
     Route: 048
  9. TAKEPRON [Concomitant]
     Indication: GASTRITIS
     Route: 048
  10. LOXOPROFEN [Concomitant]
     Indication: RHEUMATOID ARTHRITIS
     Route: 065
     Dates: start: 20130513, end: 20130812
  11. FOLIAMIN [Concomitant]
     Indication: PROPHYLAXIS
     Route: 048
  12. SELBEX [Concomitant]
     Indication: GASTRITIS
     Route: 048
  13. ISCOTIN [Concomitant]
     Indication: PROPHYLAXIS
     Route: 048
  14. MEVALOTIN [Concomitant]
     Indication: HYPERLIPIDAEMIA
     Route: 048
  15. SULBACTAM [Concomitant]
     Indication: CELLULITIS
     Route: 041
     Dates: start: 20130726, end: 20130807
  16. WARFARIN [Concomitant]
     Indication: THROMBOPHLEBITIS
     Route: 048

REACTIONS (3)
  - Cellulitis [Recovering/Resolving]
  - Deep vein thrombosis [Recovering/Resolving]
  - White blood cell count decreased [Recovering/Resolving]
